FAERS Safety Report 12420881 (Version 6)
Quarter: 2016Q3

REPORT INFORMATION
  Report Type: Report from Study
  Country: US (occurrence: US)
  Receive Date: 20160531
  Receipt Date: 20160819
  Transmission Date: 20161109
  Serious: Yes (Other)
  Sender: FDA-Public Use
  Company Number: US-JNJFOC-20160213808

PATIENT
  Age: 78 Year
  Sex: Male

DRUGS (3)
  1. IMBRUVICA [Suspect]
     Active Substance: IBRUTINIB
     Indication: CHRONIC LYMPHOCYTIC LEUKAEMIA
     Route: 048
     Dates: start: 2016
  2. IMBRUVICA [Suspect]
     Active Substance: IBRUTINIB
     Indication: CHRONIC LYMPHOCYTIC LEUKAEMIA
     Route: 048
     Dates: start: 2016, end: 2016
  3. IMBRUVICA [Suspect]
     Active Substance: IBRUTINIB
     Indication: CHRONIC LYMPHOCYTIC LEUKAEMIA
     Route: 048
     Dates: start: 20160129, end: 2016

REACTIONS (16)
  - Heart rate decreased [Recovered/Resolved]
  - Glossodynia [Recovering/Resolving]
  - Arthralgia [Not Recovered/Not Resolved]
  - Pain in extremity [Not Recovered/Not Resolved]
  - Stomatitis [Unknown]
  - Haemoglobin decreased [Recovering/Resolving]
  - Diarrhoea [Not Recovered/Not Resolved]
  - Oral discomfort [Recovering/Resolving]
  - Extrasystoles [Unknown]
  - Bone pain [Not Recovered/Not Resolved]
  - Dizziness [Unknown]
  - Pyrexia [Recovered/Resolved]
  - Peripheral swelling [Not Recovered/Not Resolved]
  - Nasopharyngitis [Not Recovered/Not Resolved]
  - Arrhythmia [Unknown]
  - Bronchitis [Unknown]

NARRATIVE: CASE EVENT DATE: 2016
